FAERS Safety Report 9221981 (Version 1)
Quarter: 2013Q1

REPORT INFORMATION
  Report Type: Spontaneous
  Country: US (occurrence: None)
  Receive Date: 20120913
  Receipt Date: 20120913
  Transmission Date: 20140127
  Serious: Yes (Hospitalization, Other)
  Sender: FDA-Public Use
  Company Number: PHEH2012US014574

PATIENT
  Sex: Female

DRUGS (1)
  1. EXTAVIA [Suspect]
     Indication: MULTIPLE SCLEROSIS
     Route: 058
     Dates: start: 20120606

REACTIONS (9)
  - Pneumonia [None]
  - Multiple sclerosis relapse [None]
  - Neurogenic bladder [None]
  - Miliaria [None]
  - Migraine [None]
  - Paralysis [None]
  - Hypoaesthesia [None]
  - Dysphagia [None]
  - Headache [None]
